FAERS Safety Report 6916439-6 (Version None)
Quarter: 2010Q3

REPORT INFORMATION
  Report Type: 
  Country: None (occurrence: None)
  Receive Date: 20100810
  Receipt Date: 20100728
  Transmission Date: 20110219
  Serious: Yes (Other)
  Sender: FDA-Public Use
  Company Number: PHHY2010US48816

PATIENT
  Sex: Male
  Weight: 79.5 kg

DRUGS (8)
  1. EXJADE [Suspect]
     Indication: MYELODYSPLASTIC SYNDROME
     Dosage: 2000 MGDAILY
     Route: 048
     Dates: start: 20090612
  2. EXJADE [Suspect]
     Dosage: 2000 MG, UNK
     Route: 048
     Dates: start: 20100524, end: 20100714
  3. VALTREX [Concomitant]
     Indication: HERPES ZOSTER
     Dosage: 500 MG, UNK
     Route: 048
     Dates: start: 20100309
  4. VIDAZA [Concomitant]
     Indication: MYELODYSPLASTIC SYNDROME
     Dosage: UNK
     Route: 042
     Dates: start: 20100628
  5. LIPITOR [Concomitant]
     Dosage: 20 MG, UNK
     Route: 048
  6. METOPROLOL [Concomitant]
     Dosage: 25 MG, BID
     Route: 048
  7. RED BLOOD CELLS [Concomitant]
     Dosage: UNK
  8. PLATELETS [Concomitant]

REACTIONS (2)
  - GASTROINTESTINAL HAEMORRHAGE [None]
  - RECTAL HAEMORRHAGE [None]
